FAERS Safety Report 8113666-X (Version None)
Quarter: 2012Q1

REPORT INFORMATION
  Report Type: 
  Country: None (occurrence: None)
  Receive Date: 20120203
  Receipt Date: 20120120
  Transmission Date: 20120608
  Serious: Yes (Other)
  Sender: FDA-Public Use
  Company Number: BR-AMGEN-BRASP2012006475

PATIENT
  Age: 60 Year
  Sex: Female
  Weight: 73.968 kg

DRUGS (5)
  1. DIPYRONE INJ [Concomitant]
     Dosage: UNK
  2. SCOPOLAMINE [Concomitant]
     Dosage: UNK
  3. OMEPRAZOLE [Concomitant]
     Dosage: UNK
  4. HYDROCHLOROTHIAZIDE [Concomitant]
     Dosage: UNK
  5. ENBREL [Suspect]
     Indication: PSORIATIC ARTHROPATHY
     Dosage: 50 MG, 1X/WEEK
     Route: 058

REACTIONS (3)
  - BACK PAIN [None]
  - GASTROINTESTINAL OEDEMA [None]
  - SKIN LESION [None]
